FAERS Safety Report 13217070 (Version 1)
Quarter: 2017Q1

REPORT INFORMATION
  Report Type: Spontaneous
  Country: US (occurrence: US)
  Receive Date: 20170210
  Receipt Date: 20170210
  Transmission Date: 20170428
  Serious: No
  Sender: FDA-Public Use
  Company Number: US-ACORDA-ACO_121921_2016

PATIENT
  Sex: Male

DRUGS (1)
  1. AMPYRA [Suspect]
     Active Substance: DALFAMPRIDINE
     Indication: PRODUCT USED FOR UNKNOWN INDICATION
     Dosage: UNK
     Route: 065

REACTIONS (8)
  - Intervertebral disc degeneration [Unknown]
  - Muscular weakness [Unknown]
  - Bladder disorder [Unknown]
  - Vitamin D deficiency [Unknown]
  - Depression [Unknown]
  - Cognitive disorder [Unknown]
  - Gait disturbance [Unknown]
  - Fatigue [Unknown]
